FAERS Safety Report 16739934 (Version 1)
Quarter: 2019Q3

REPORT INFORMATION
  Report Type: Spontaneous
  Country: US (occurrence: US)
  Receive Date: 20190826
  Receipt Date: 20190826
  Transmission Date: 20191005
  Serious: No
  Sender: FDA-Public Use
  Company Number: US-AMGEN-USASP2019134059

PATIENT
  Age: 88 Year
  Sex: Female

DRUGS (6)
  1. SPIRONOLACTONE. [Concomitant]
     Active Substance: SPIRONOLACTONE
  2. LISINOPRIL. [Concomitant]
     Active Substance: LISINOPRIL
  3. ARANESP [Suspect]
     Active Substance: DARBEPOETIN ALFA
     Indication: MYELODYSPLASTIC SYNDROME
  4. ARANESP [Suspect]
     Active Substance: DARBEPOETIN ALFA
     Indication: PANCYTOPENIA
     Dosage: UNK
     Route: 065
  5. ROSUVASTATIN. [Concomitant]
     Active Substance: ROSUVASTATIN
  6. PROTONIX [OMEPRAZOLE] [Concomitant]
     Active Substance: OMEPRAZOLE

REACTIONS (5)
  - Vision blurred [Unknown]
  - Rash macular [Unknown]
  - Abdominal pain upper [Unknown]
  - Pain [Unknown]
  - Pruritus [Unknown]
